FAERS Safety Report 25916837 (Version 2)
Quarter: 2025Q4

REPORT INFORMATION
  Report Type: Report from Study
  Country: CA (occurrence: CA)
  Receive Date: 20251014
  Receipt Date: 20251126
  Transmission Date: 20260117
  Serious: Yes (Other)
  Sender: BIOVITRUM
  Company Number: CA-BIOVITRUM-2024-CA-014941

PATIENT
  Age: 58 Year
  Sex: Female

DRUGS (28)
  1. DOPTELET [Suspect]
     Active Substance: AVATROMBOPAG MALEATE
     Indication: Immune thrombocytopenia
     Dosage: DAILY
     Route: 048
     Dates: start: 20241115
  2. DOPTELET [Suspect]
     Active Substance: AVATROMBOPAG MALEATE
     Dosage: 3 TIMES A WEEK
     Route: 048
     Dates: start: 20241206
  3. DOPTELET [Suspect]
     Active Substance: AVATROMBOPAG MALEATE
     Dosage: 5 TIMES A WEEK
     Route: 048
     Dates: start: 20241218
  4. DOPTELET [Suspect]
     Active Substance: AVATROMBOPAG MALEATE
     Dosage: 5 TIMES A WEEK
     Route: 048
     Dates: start: 20241115
  5. DOPTELET [Suspect]
     Active Substance: AVATROMBOPAG MALEATE
     Dosage: DAILY
     Route: 048
     Dates: start: 20250326
  6. DOPTELET [Suspect]
     Active Substance: AVATROMBOPAG MALEATE
     Dosage: 6 TIMES A WEEK
     Route: 048
     Dates: start: 20250501
  7. DOPTELET [Suspect]
     Active Substance: AVATROMBOPAG MALEATE
     Dosage: 5 TIMES A WEEK
     Route: 048
     Dates: start: 20250514
  8. DOPTELET [Suspect]
     Active Substance: AVATROMBOPAG MALEATE
     Dosage: 3 TIMES A WEEK/ 3 TABLET PER WEEK
     Route: 048
     Dates: start: 20250603
  9. DOPTELET [Suspect]
     Active Substance: AVATROMBOPAG MALEATE
     Dosage: 2 TABLETS, FREQUENCY: X TIMES 1 WEEK(S)
     Route: 048
     Dates: start: 20241115
  10. DOPTELET [Suspect]
     Active Substance: AVATROMBOPAG MALEATE
     Dosage: 3 TIMES A WEEK
     Route: 048
     Dates: start: 20241205
  11. DOPTELET [Suspect]
     Active Substance: AVATROMBOPAG MALEATE
     Dosage: 4 TIMES A WEEK
     Route: 048
     Dates: start: 20250117
  12. DOPTELET [Suspect]
     Active Substance: AVATROMBOPAG MALEATE
     Dosage: 5 TIMES A WEEK
     Route: 048
     Dates: start: 20250226
  13. DOPTELET [Suspect]
     Active Substance: AVATROMBOPAG MALEATE
     Dosage: 6 TIMES PER WEEK
     Route: 048
     Dates: start: 20250430
  14. DOPTELET [Suspect]
     Active Substance: AVATROMBOPAG MALEATE
     Dosage: ONLY TWICE A WEEK
     Route: 048
  15. DOPTELET [Suspect]
     Active Substance: AVATROMBOPAG MALEATE
     Dosage: 2 TIMES A WEEK
     Route: 048
     Dates: start: 20250718
  16. DOPTELET [Suspect]
     Active Substance: AVATROMBOPAG MALEATE
     Dosage: ONCE A WEEK
     Route: 048
     Dates: start: 20250904
  17. DOPTELET [Suspect]
     Active Substance: AVATROMBOPAG MALEATE
     Dosage: 1 DOPTELET PER WEEK
  18. CLARITHROMYCIN [Suspect]
     Active Substance: CLARITHROMYCIN
     Indication: Antibiotic therapy
  19. CLARITHROMYCIN [Suspect]
     Active Substance: CLARITHROMYCIN
     Indication: Pharyngitis
  20. CLARITHROMYCIN [Suspect]
     Active Substance: CLARITHROMYCIN
     Indication: Laryngitis
  21. METHOTREXATE [Concomitant]
     Active Substance: METHOTREXATE
     Indication: Product used for unknown indication
     Dosage: WEEKLY
     Route: 048
  22. METHOTREXATE [Concomitant]
     Active Substance: METHOTREXATE
     Dosage: WEEKLY
     Route: 048
  23. FOLIC ACID [Concomitant]
     Active Substance: FOLIC ACID
     Indication: Product used for unknown indication
     Dosage: 6 DAYS WEEKLY
  24. HYDROXYCHLOROQUINE [Concomitant]
     Active Substance: HYDROXYCHLOROQUINE
     Indication: Product used for unknown indication
     Dosage: ON HOLD
  25. SULFASALAZINE [Concomitant]
     Active Substance: SULFASALAZINE
     Indication: Product used for unknown indication
     Dosage: HOLD
  26. PANTOPRAZOLE [Concomitant]
     Active Substance: PANTOPRAZOLE
     Indication: Gastrointestinal disorder prophylaxis
     Dosage: DAILY
     Route: 048
  27. TYLENOL [Concomitant]
     Active Substance: ACETAMINOPHEN
     Indication: Rheumatoid arthritis
  28. ADVIL [Concomitant]
     Active Substance: IBUPROFEN
     Indication: Product used for unknown indication

REACTIONS (18)
  - Headache [Recovering/Resolving]
  - Arthralgia [Unknown]
  - Platelet count decreased [Recovered/Resolved]
  - Blood bilirubin decreased [Not Recovered/Not Resolved]
  - Red cell distribution width increased [Not Recovered/Not Resolved]
  - Blood creatinine decreased [Recovering/Resolving]
  - Alanine aminotransferase decreased [Recovered/Resolved]
  - Platelet count increased [Recovering/Resolving]
  - Cerebral venous sinus thrombosis [Unknown]
  - Cerebral small vessel ischaemic disease [Unknown]
  - Drug interaction [Recovered/Resolved]
  - Oedema peripheral [Unknown]
  - Peripheral swelling [Recovered/Resolved]
  - Laryngitis [Recovered/Resolved]
  - Tinnitus [Unknown]
  - Rheumatoid arthritis [Unknown]
  - Pharyngitis [Recovered/Resolved]
  - Loss of personal independence in daily activities [Unknown]

NARRATIVE: CASE EVENT DATE: 20250101
